FAERS Safety Report 7519145-2 (Version None)
Quarter: 2011Q2

REPORT INFORMATION
  Report Type: 
  Country: None (occurrence: None)
  Receive Date: 20110602
  Receipt Date: 20110524
  Transmission Date: 20111010
  Serious: Yes (Hospitalization, Other)
  Sender: FDA-Public Use
  Company Number: US-ROCHE-754305

PATIENT
  Sex: Male
  Weight: 49.9 kg

DRUGS (1)
  1. ACCUTANE [Suspect]
     Indication: ACNE
     Route: 065
     Dates: start: 20010801, end: 20020301

REACTIONS (11)
  - PANIC DISORDER WITHOUT AGORAPHOBIA [None]
  - SUICIDAL IDEATION [None]
  - INTESTINAL OBSTRUCTION [None]
  - INTESTINAL POLYP [None]
  - SYNCOPE [None]
  - INFLAMMATORY BOWEL DISEASE [None]
  - COLITIS ULCERATIVE [None]
  - DEPRESSION [None]
  - INTESTINAL PERFORATION [None]
  - ANAL FISTULA [None]
  - EMOTIONAL DISTRESS [None]
